FAERS Safety Report 7294640-2 (Version None)
Quarter: 2011Q1

REPORT INFORMATION
  Report Type: 
  Country: None (occurrence: None)
  Receive Date: 20110204
  Receipt Date: 20110120
  Transmission Date: 20110831
  Serious: Yes (Other)
  Sender: FDA-Public Use
  Company Number: 806678

PATIENT
  Age: 41 Year
  Sex: Male
  Weight: 93.18 kg

DRUGS (2)
  1. KENALOG [Concomitant]
  2. MARCAINE [Suspect]
     Indication: PAIN
     Dosage: 2CC'S X1, JOINT INJ. L FOOT, OTHER
     Dates: start: 20101213, end: 20101213

REACTIONS (4)
  - DIZZINESS [None]
  - ELECTROCARDIOGRAM ABNORMAL [None]
  - INADEQUATE ANALGESIA [None]
  - SYNCOPE [None]
